FAERS Safety Report 14310599 (Version 6)
Quarter: 2018Q2

REPORT INFORMATION
  Report Type: Spontaneous
  Country: JP (occurrence: JP)
  Receive Date: 20171220
  Receipt Date: 20180514
  Transmission Date: 20180711
  Serious: Yes (Hospitalization, Disabling, Other)
  Sender: FDA-Public Use
  Company Number: JP-BEH-2017085988

PATIENT
  Age: 83 Year
  Sex: Male
  Weight: 42 kg

DRUGS (6)
  1. KCENTRA [Suspect]
     Active Substance: COAGULATION FACTOR IX HUMAN\COAGULATION FACTOR VII HUMAN\COAGULATION FACTOR X HUMAN\PROTEIN C\PROTEIN S HUMAN\PROTHROMBIN
     Indication: SUBDURAL HAEMATOMA
     Dosage: 1000 IU (40 ML), SINGLE
     Route: 042
     Dates: start: 20171204, end: 20171204
  2. WARFAR [Concomitant]
     Indication: ATRIAL FIBRILLATION
     Dosage: 3 MG, OD
     Route: 065
  3. KAYTWO [Concomitant]
     Active Substance: MENATETRENONE
     Dosage: UNK
     Route: 042
     Dates: start: 20171204, end: 20171204
  4. CARVEDILOL. [Concomitant]
     Active Substance: CARVEDILOL
     Route: 065
  5. KCENTRA [Suspect]
     Active Substance: COAGULATION FACTOR IX HUMAN\COAGULATION FACTOR VII HUMAN\COAGULATION FACTOR X HUMAN\PROTEIN C\PROTEIN S HUMAN\PROTHROMBIN
     Indication: PROCOAGULANT THERAPY
  6. VITAMIN K [Concomitant]
     Active Substance: PHYTONADIONE
     Route: 065

REACTIONS (5)
  - Embolic stroke [Recovered/Resolved with Sequelae]
  - Cerebral infarction [Recovered/Resolved with Sequelae]
  - Cerebral artery occlusion [Recovering/Resolving]
  - Cerebral artery embolism [Recovering/Resolving]
  - Monoplegia [Recovered/Resolved with Sequelae]

NARRATIVE: CASE EVENT DATE: 20171207
